FAERS Safety Report 6266238-6 (Version None)
Quarter: 2009Q3

REPORT INFORMATION
  Report Type: 
  Country: None (occurrence: None)
  Receive Date: 20090713
  Receipt Date: 20090701
  Transmission Date: 20100115
  Serious: Yes (Hospitalization, Other)
  Sender: FDA-Public Use
  Company Number: JP-PFIZER INC-2009192381

PATIENT
  Age: 76 Year

DRUGS (14)
  1. CELECOX [Suspect]
     Indication: RHEUMATOID ARTHRITIS
     Dosage: 100 MG, 2X/DAY
     Route: 048
     Dates: start: 20090309, end: 20090321
  2. CELECOX [Suspect]
     Dosage: 100 MG, 2X/DAY
     Route: 048
     Dates: start: 20090629, end: 20090630
  3. RIMATIL [Suspect]
     Indication: RHEUMATOID ARTHRITIS
     Dosage: 200 MG, 2X/DAY
     Route: 048
     Dates: start: 20090313, end: 20090320
  4. MICARDIS [Concomitant]
     Dosage: UNK
     Route: 048
  5. MYSLEE [Concomitant]
     Dosage: UNK
     Route: 065
  6. GASTER [Concomitant]
     Dosage: UNK
     Route: 065
  7. HARNAL [Concomitant]
     Dosage: UNK
     Route: 065
     Dates: end: 20090221
  8. PLAVIX [Concomitant]
     Dosage: UNK
     Route: 048
  9. AMLODIPINE [Concomitant]
     Dosage: UNK
  10. ALOSENN [Concomitant]
     Dosage: UNK
     Route: 048
  11. DOPS [Concomitant]
     Dosage: UNK
     Dates: start: 20090101
  12. URIEF [Concomitant]
     Dosage: UNK
     Route: 048
     Dates: start: 20090221
  13. PERSELIN [Concomitant]
     Dosage: UNK
     Route: 048
     Dates: start: 20090221
  14. GASLON [Concomitant]
     Dosage: UNK
     Route: 048
     Dates: start: 20090313, end: 20090321

REACTIONS (3)
  - DRUG ERUPTION [None]
  - ERYTHEMA MULTIFORME [None]
  - PYREXIA [None]
